FAERS Safety Report 4947826-3 (Version None)
Quarter: 2006Q1

REPORT INFORMATION
  Report Type: 
  Country: None (occurrence: None)
  Receive Date: 20060313
  Receipt Date: 20060227
  Transmission Date: 20060701
  Serious: Yes (Other)
  Sender: FDA-Public Use
  Company Number: 218473

PATIENT
  Age: 54 Year
  Sex: Male

DRUGS (6)
  1. AVASTIN [Suspect]
     Indication: COLON CANCER
     Dosage: 416 MG, Q2W, INTRAVENOUS
     Route: 042
     Dates: start: 20050517
  2. OXALIPLATIN (OXALIPLATIN) [Suspect]
     Indication: COLON CANCER
     Dosage: 170 MG, Q2W, INTRAVENOUS
     Route: 042
     Dates: start: 20050517
  3. FLUOROURACIL [Suspect]
     Indication: COLON CANCER
     Dosage: SEE IMAGE
     Route: 042
     Dates: start: 20050517
  4. LEUCOVORIN CALCIUM [Suspect]
     Indication: COLON CANCER
     Dosage: 400 MG, Q2W, INTRAVENOUS
     Route: 042
     Dates: start: 20050517
  5. ENOXAPARIN SODIUM [Concomitant]
  6. FORTECORTIN (DEXAMETHASONE) [Concomitant]

REACTIONS (1)
  - HYPERTRIGLYCERIDAEMIA [None]
